FAERS Safety Report 21655534 (Version 1)
Quarter: 2022Q4

REPORT INFORMATION
  Report Type: Spontaneous
  Country: CA (occurrence: CA)
  Receive Date: 20221129
  Receipt Date: 20221129
  Transmission Date: 20230113
  Serious: Yes (Life-Threatening, Hospitalization)
  Sender: FDA-Public Use
  Company Number: CA-ORGANON-O2211CAN002368

PATIENT
  Age: 32 Year
  Sex: Female
  Weight: 71 kg

DRUGS (1)
  1. NUVARING [Suspect]
     Active Substance: ETHINYL ESTRADIOL\ETONOGESTREL
     Indication: Contraception
     Dosage: RING (SLOW-RELEASE), 1 EVERY 28 DAYS
     Route: 067

REACTIONS (5)
  - Antiphospholipid syndrome [Unknown]
  - Benign breast neoplasm [Unknown]
  - Brain natriuretic peptide abnormal [Unknown]
  - Pulmonary embolism [Unknown]
  - Sinus tachycardia [Unknown]
